FAERS Safety Report 8589406-7 (Version None)
Quarter: 2012Q3

REPORT INFORMATION
  Report Type: 
  Country: None (occurrence: None)
  Receive Date: 20120813
  Receipt Date: 20120808
  Transmission Date: 20120928
  Serious: Yes (Other)
  Sender: FDA-Public Use
  Company Number: US-PFIZER INC-2012193470

PATIENT
  Sex: Female

DRUGS (3)
  1. CELEBREX [Suspect]
     Dosage: UNK
  2. LYRICA [Suspect]
     Dosage: UNK
  3. NEURONTIN [Suspect]
     Dosage: UNK

REACTIONS (7)
  - OESOPHAGEAL DISORDER [None]
  - CYST [None]
  - ARTHRALGIA [None]
  - BACK PAIN [None]
  - SINUS HEADACHE [None]
  - DRUG EFFECT DECREASED [None]
  - ARTHROPATHY [None]
